FAERS Safety Report 7360879-0 (Version None)
Quarter: 2011Q1

REPORT INFORMATION
  Report Type: 
  Country: None (occurrence: None)
  Receive Date: 20110310
  Receipt Date: 20110224
  Transmission Date: 20110831
  Serious: Yes (Hospitalization)
  Sender: FDA-Public Use
  Company Number: 2010-4047

PATIENT
  Age: 49 Year
  Sex: Female
  Weight: 49 kg

DRUGS (5)
  1. ABOBOTULINUMTOXIN A [Suspect]
  2. DYSPORT [Suspect]
     Indication: SKIN WRINKLING
     Dosage: 140 UNITS (140 UNITS, SINGLE CYCLE), INTRAMUSCULAR
     Route: 030
     Dates: start: 20101029, end: 20101029
  3. DYSPORT [Suspect]
     Indication: OFF LABEL USE
     Dosage: 140 UNITS (140 UNITS, SINGLE CYCLE), INTRAMUSCULAR
     Route: 030
     Dates: start: 20101029, end: 20101029
  4. DYSPORT [Suspect]
     Indication: SKIN COSMETIC PROCEDURE
     Dosage: 140 UNITS (140 UNITS, SINGLE CYCLE), INTRAMUSCULAR
     Route: 030
     Dates: start: 20101029, end: 20101029
  5. MULTIVITAM [Concomitant]

REACTIONS (6)
  - VERTIGO [None]
  - LIP PAIN [None]
  - EYELID PTOSIS [None]
  - SWELLING FACE [None]
  - DYSPNOEA [None]
  - FATIGUE [None]
